FAERS Safety Report 24179464 (Version 1)
Quarter: 2024Q3

REPORT INFORMATION
  Report Type: Spontaneous
  Country: US (occurrence: None)
  Receive Date: 20240805
  Receipt Date: 20240805
  Transmission Date: 20241017
  Serious: No
  Sender: Public
  Company Number: None

PATIENT
  Age: 43 Year
  Sex: Female

DRUGS (1)
  1. PAXLOVID [Suspect]
     Active Substance: NIRMATRELVIR\RITONAVIR

REACTIONS (7)
  - SARS-CoV-2 test positive [None]
  - Rhinorrhoea [None]
  - Oropharyngeal pain [None]
  - Pain [None]
  - Brain fog [None]
  - Headache [None]
  - COVID-19 [None]

NARRATIVE: CASE EVENT DATE: 20240801
